FAERS Safety Report 7985989-6 (Version None)
Quarter: 2011Q4

REPORT INFORMATION
  Report Type: 
  Country: None (occurrence: None)
  Receive Date: 20111216
  Receipt Date: 20111213
  Transmission Date: 20120403
  Serious: Yes (Other)
  Sender: FDA-Public Use
  Company Number: US-MERCK-01104567

PATIENT
  Age: 50 Year
  Sex: Female

DRUGS (6)
  1. FOSAMAX [Suspect]
     Indication: OSTEOPOROSIS
     Route: 048
     Dates: start: 20011022
  2. COLACE [Concomitant]
     Route: 065
  3. MIACALCIN [Concomitant]
     Route: 065
  4. LOPRESSOR [Concomitant]
     Route: 065
  5. FOSAMAX [Suspect]
     Route: 048
  6. BUSPAR [Concomitant]
     Route: 065

REACTIONS (6)
  - BACK PAIN [None]
  - LETHARGY [None]
  - FEMUR FRACTURE [None]
  - PAIN IN EXTREMITY [None]
  - CHILLS [None]
  - PYREXIA [None]
